FAERS Safety Report 6935809-3 (Version None)
Quarter: 2010Q3

REPORT INFORMATION
  Report Type: 
  Country: None (occurrence: None)
  Receive Date: 20100823
  Receipt Date: 20100809
  Transmission Date: 20110219
  Serious: Yes (Other)
  Sender: FDA-Public Use
  Company Number: US-ELI_LILLY_AND_COMPANY-US201008003253

PATIENT
  Age: 27 Year
  Sex: Female

DRUGS (6)
  1. CYMBALTA [Suspect]
     Indication: NEUROPATHY PERIPHERAL
     Dosage: 120 MG, UNK
  2. CYMBALTA [Suspect]
     Dosage: 180 MG, UNK
  3. CYMBALTA [Suspect]
     Dosage: 60 MG, DAILY (1/D)
  4. CYMBALTA [Suspect]
     Dosage: 30 MG, 2/D
  5. LYRICA [Concomitant]
  6. TIZANIDINE HCL [Concomitant]

REACTIONS (8)
  - DEPRESSED LEVEL OF CONSCIOUSNESS [None]
  - FEMUR FRACTURE [None]
  - HAEMOGLOBIN DECREASED [None]
  - HAEMORRHAGE [None]
  - OFF LABEL USE [None]
  - OVERDOSE [None]
  - PARAESTHESIA [None]
  - WEIGHT INCREASED [None]
